FAERS Safety Report 6878887-2 (Version None)
Quarter: 2010Q3

REPORT INFORMATION
  Report Type: 
  Country: None (occurrence: None)
  Receive Date: 20100728
  Receipt Date: 20100716
  Transmission Date: 20110219
  Serious: Yes (Hospitalization)
  Sender: FDA-Public Use
  Company Number: US-BAYER-201024294NA

PATIENT
  Age: 70 Year
  Sex: Male
  Weight: 75 kg

DRUGS (24)
  1. SORAFENIB (STUDY MED NOT GIVEN) [Suspect]
     Indication: RENAL CANCER METASTATIC
  2. VORINOSTAT (STUDY MED NOT GIVEN) [Suspect]
     Indication: RENAL CANCER METASTATIC
  3. SORAFENIB [Suspect]
     Indication: RENAL CANCER METASTATIC
     Dosage: TOTAL DAILY DOSE: 800 MG  UNIT DOSE: 200 MG
     Route: 048
     Dates: start: 20100603, end: 20100613
  4. SORAFENIB [Suspect]
     Dosage: TOTAL DAILY DOSE: 800 MG  UNIT DOSE: 200 MG
     Route: 048
     Dates: start: 20100625
  5. VORINOSTAT [Suspect]
     Indication: RENAL CANCER METASTATIC
     Dosage: TOTAL DAILY DOSE: 300 MG
     Dates: start: 20100603, end: 20100612
  6. VORINOSTAT [Suspect]
     Dosage: TOTAL DAILY DOSE: 200 MG
     Dates: start: 20100625
  7. SIMVASTATIN [Concomitant]
  8. CITALOPRAM HYDROBROMIDE [Concomitant]
     Dates: start: 20090813
  9. TRENTAL [Concomitant]
     Dates: start: 20091105
  10. FLOMAX [Concomitant]
     Dates: start: 20090601
  11. COLACE [Concomitant]
     Dosage: 2 TABLEST
     Route: 048
  12. METAMUCIL-2 [Concomitant]
     Dosage: 1 TABLESPOON
  13. VITAMINS [Concomitant]
  14. TESSALON [Concomitant]
     Dates: start: 20100614
  15. CELEXA [Concomitant]
     Dates: start: 20090813
  16. CODEINE [Concomitant]
     Dates: start: 20100617
  17. NEXIUM [Concomitant]
     Dates: start: 20100614
  18. FLONASE [Concomitant]
     Dates: start: 20100615
  19. MILK OF MAGNESIUM [Concomitant]
     Dates: start: 20100101
  20. ZOFRAN [Concomitant]
     Dates: start: 20100318
  21. POTASSIUM PHOSPHATES [Concomitant]
     Dates: start: 20100618
  22. COMPAZINE [Concomitant]
  23. SENNA-S [Concomitant]
  24. ZOCOR [Concomitant]

REACTIONS (5)
  - FAILURE TO THRIVE [None]
  - HAEMATOCHEZIA [None]
  - HAEMOPTYSIS [None]
  - PLEURISY [None]
  - PRESYNCOPE [None]
